FAERS Safety Report 8518414-7 (Version None)
Quarter: 2012Q3

REPORT INFORMATION
  Report Type: 
  Country: None (occurrence: None)
  Receive Date: 20120718
  Receipt Date: 20120213
  Transmission Date: 20120928
  Serious: No
  Sender: FDA-Public Use
  Company Number: US-BRISTOL-MYERS SQUIBB COMPANY-16397564

PATIENT
  Age: 45 Year
  Sex: Female
  Weight: 77 kg

DRUGS (20)
  1. ACTOS [Concomitant]
     Dosage: TABS
  2. ASPIRIN [Concomitant]
  3. COUMADIN [Suspect]
     Dosage: NDC# 00056-0169-70
     Dates: start: 20040101, end: 20040101
  4. METOPROLOL SUCCINATE [Concomitant]
  5. DIPHENOXYLATE HCL + ATROPINE SULFATE [Concomitant]
     Indication: DIARRHOEA
     Dosage: TABS
  6. SIMVASTATIN [Concomitant]
  7. LASIX [Concomitant]
     Dosage: MORNING
  8. PROZAC [Concomitant]
     Dosage: MORNING
  9. DICYCLOMINE [Concomitant]
  10. LISINOPRIL [Concomitant]
  11. ALBUTEROL [Concomitant]
  12. ZOLPIDEM TARTRATE [Concomitant]
     Dosage: ER TABS ONCE DAILY BEDTIME
  13. POTKLAR [Concomitant]
     Dosage: 1DF=3 TABS 20MEQ ER TABS
  14. METFORMIN HYDROCHLORIDE [Concomitant]
  15. ONDANSETRON [Concomitant]
  16. PANCRELIPASE [Concomitant]
  17. MULTI-VITAMIN [Concomitant]
  18. AMIODARONE HCL [Concomitant]
     Dosage: TABS 5MG
  19. NEXIUM [Concomitant]
  20. HYDROCODONE BITARTRATE [Concomitant]

REACTIONS (1)
  - INTERNATIONAL NORMALISED RATIO ABNORMAL [None]
